FAERS Safety Report 17518768 (Version 1)
Quarter: 2020Q1

REPORT INFORMATION
  Report Type: Spontaneous
  Country: CN (occurrence: CN)
  Receive Date: 20200309
  Receipt Date: 20200309
  Transmission Date: 20200409
  Serious: Yes (Death, Other)
  Sender: FDA-Public Use
  Company Number: CN-AGG-02-2020-2198

PATIENT
  Age: 9 Decade
  Sex: Female

DRUGS (2)
  1. VASOACTIVE DRUGS (NOT SPECIFIED) [Concomitant]
  2. AGGRASTAT [Suspect]
     Active Substance: TIROFIBAN HYDROCHLORIDE
     Indication: ANTIPLATELET THERAPY

REACTIONS (3)
  - Ventricle rupture [Fatal]
  - Loss of consciousness [Not Recovered/Not Resolved]
  - Metabolic acidosis [Not Recovered/Not Resolved]
